FAERS Safety Report 13076406 (Version 1)
Quarter: 2016Q4

REPORT INFORMATION
  Report Type: Spontaneous
  Country: US (occurrence: US)
  Receive Date: 20161230
  Receipt Date: 20161230
  Transmission Date: 20170207
  Serious: Yes (Other)
  Sender: FDA-Public Use
  Company Number: US-JNJFOC-20161225957

PATIENT
  Sex: Male
  Weight: 104.33 kg

DRUGS (6)
  1. RISPERDAL [Suspect]
     Active Substance: RISPERIDONE
     Indication: SCHIZOAFFECTIVE DISORDER
     Route: 048
  2. LEVONOX [Suspect]
     Active Substance: ENOXAPARIN
     Indication: THROMBOSIS
     Route: 065
  3. ARTANE [Concomitant]
     Active Substance: TRIHEXYPHENIDYL HYDROCHLORIDE
     Route: 065
  4. REMERON [Concomitant]
     Active Substance: MIRTAZAPINE
     Route: 065
  5. LISINOPRIL. [Concomitant]
     Active Substance: LISINOPRIL
     Route: 065
  6. METOPROLOL. [Concomitant]
     Active Substance: METOPROLOL
     Route: 065

REACTIONS (4)
  - Contusion [Recovering/Resolving]
  - Pruritus [Not Recovered/Not Resolved]
  - Thrombosis [Not Recovered/Not Resolved]
  - Nodule [Recovering/Resolving]
